FAERS Safety Report 23741236 (Version 1)
Quarter: 2024Q2

REPORT INFORMATION
  Report Type: Spontaneous
  Country: GB (occurrence: GB)
  Receive Date: 20240415
  Receipt Date: 20240415
  Transmission Date: 20240716
  Serious: Yes (Other)
  Sender: FDA-Public Use
  Company Number: None

PATIENT
  Age: 53 Year
  Sex: Female
  Weight: 108 kg

DRUGS (9)
  1. QUETIAPINE [Suspect]
     Active Substance: QUETIAPINE
     Indication: Ill-defined disorder
     Dates: start: 20240322
  2. ATORVASTATIN [Concomitant]
     Active Substance: ATORVASTATIN
     Indication: Ill-defined disorder
     Dosage: TAKE ONE TABLET ONCE A DAY (PLEASE BOOK A BLOOD...
     Dates: start: 20231228
  3. CITALOPRAM [Concomitant]
     Active Substance: CITALOPRAM\CITALOPRAM HYDROBROMIDE
     Indication: Ill-defined disorder
     Dosage: TAKE ONE TABLET EACH MORNING FOR LOW MOOD
     Dates: start: 20230720
  4. DIAZEPAM [Concomitant]
     Active Substance: DIAZEPAM
     Indication: Anxiety
     Dosage: 1 TABLET (2MG) UP TO 3 TIMES DAILY - AVOID REGULAR USE ADDICTIVE PROPERTIES
     Dates: start: 20240301, end: 20240306
  5. FEXOFENADINE [Concomitant]
     Active Substance: FEXOFENADINE HYDROCHLORIDE
     Indication: Ill-defined disorder
     Dosage: TAKE ONE TABLET ONCE A DAY. INCREASE TO 2 TABLE...
     Dates: start: 20240326
  6. LANSOPRAZOLE [Concomitant]
     Active Substance: LANSOPRAZOLE
     Indication: Ill-defined disorder
     Dosage: TAKE ONE ONCE DAILY FOR STOMACH
     Dates: start: 20231228
  7. PREDNISOLONE [Concomitant]
     Active Substance: PREDNISOLONE
     Indication: Ill-defined disorder
     Dosage: TAKE FOUR TABLETS DAILY FOR 7 DAYS.
     Dates: start: 20240326, end: 20240327
  8. PROPRANOLOL [Concomitant]
     Active Substance: PROPRANOLOL HYDROCHLORIDE
     Indication: Ill-defined disorder
     Dosage: TAKE ONE TABLET TWICE A DAY FOR ANXIETY SYMPTOMS
     Dates: start: 20240124
  9. ZOPICLONE [Concomitant]
     Active Substance: ZOPICLONE
     Indication: Ill-defined disorder
     Dosage: TAKE ONE TABLET AT NIGHT REGULARLY FOR 5-7 NIGH...
     Dates: start: 20240301, end: 20240322

REACTIONS (2)
  - Urticaria [Recovering/Resolving]
  - Adverse drug reaction [Recovering/Resolving]

NARRATIVE: CASE EVENT DATE: 20240322
